FAERS Safety Report 8037453-6 (Version None)
Quarter: 2012Q1

REPORT INFORMATION
  Report Type: 
  Country: None (occurrence: None)
  Receive Date: 20120111
  Receipt Date: 20120106
  Transmission Date: 20120608
  Serious: Yes (Other)
  Sender: FDA-Public Use
  Company Number: US-PFIZER INC-2012004927

PATIENT
  Sex: Female
  Weight: 59 kg

DRUGS (7)
  1. EFFEXOR XR [Suspect]
     Indication: ABNORMAL BEHAVIOUR
  2. LEXAPRO [Concomitant]
     Dosage: 40 MG, 4X/DAY
  3. LEVOTHYROXINE [Concomitant]
     Indication: HYPOTHYROIDISM
     Dosage: UNK
  4. DEPAKOTE [Concomitant]
     Dosage: UNK
  5. MULTI-VITAMINS [Concomitant]
     Dosage: UNK
  6. EFFEXOR XR [Suspect]
     Indication: DEPRESSION
     Dosage: 300 MG, 1X/DAY
     Route: 048
     Dates: end: 20111216
  7. NORVASC [Concomitant]
     Indication: HYPERTENSION
     Dosage: UNK

REACTIONS (4)
  - PARKINSON'S DISEASE [None]
  - BEHAVIOURAL AND PSYCHIATRIC SYMPTOMS OF DEMENTIA [None]
  - CEREBROVASCULAR ACCIDENT [None]
  - MEDICATION RESIDUE [None]
